FAERS Safety Report 12673974 (Version 2)
Quarter: 2016Q3

REPORT INFORMATION
  Report Type: Report from Study
  Country: US (occurrence: US)
  Receive Date: 20160822
  Receipt Date: 20160829
  Transmission Date: 20161109
  Serious: Yes (Hospitalization)
  Sender: FDA-Public Use
  Company Number: US-PFIZER INC-2016299840

PATIENT
  Age: 67 Year
  Sex: Male
  Weight: 50 kg

DRUGS (12)
  1. BLINDED PF-06438179 [Suspect]
     Active Substance: INFLIXIMAB
     Indication: RHEUMATOID ARTHRITIS
     Dosage: UNK, ON WEEK 0, 2 AND 6 FOLLOW UP ON MAINTENANCE REGIMEN OF EVERY 8 WEEKS
     Route: 042
     Dates: start: 20150630
  2. PREDNISONE. [Concomitant]
     Active Substance: PREDNISONE
     Indication: RHEUMATOID ARTHRITIS
     Dosage: UNK
     Route: 048
     Dates: start: 2005
  3. BLINDED INFLIXIMAB [Suspect]
     Active Substance: INFLIXIMAB
     Indication: RHEUMATOID ARTHRITIS
     Dosage: UNK, ON WEEK 0, 2 AND 6 FOLLOW UP ON MAINTENANCE REGIMEN OF EVERY 8 WEEKS
     Route: 042
     Dates: start: 20150630
  4. BLINDED PF-06438179 [Suspect]
     Active Substance: INFLIXIMAB
     Indication: RHEUMATOID ARTHRITIS
     Dosage: UNK, ON WEEK 0, 2 AND 6 FOLLOW UP ON MAINTENANCE REGIMEN OF EVERY 8 WEEKS
     Route: 042
     Dates: start: 20150630
  5. METHOTREXATE. [Concomitant]
     Active Substance: METHOTREXATE
     Indication: RHEUMATOID ARTHRITIS
     Dosage: 12.5 MG, PER WEEK
     Route: 048
     Dates: start: 20141016, end: 20160606
  6. PREVACID [Concomitant]
     Active Substance: LANSOPRAZOLE
     Indication: DYSPEPSIA
     Dosage: UNK
     Route: 048
     Dates: start: 20150730
  7. BLINDED INFLIXIMAB [Suspect]
     Active Substance: INFLIXIMAB
     Indication: RHEUMATOID ARTHRITIS
     Dosage: UNK, ON WEEK 0, 2 AND 6 FOLLOW UP ON MAINTENANCE REGIMEN OF EVERY 8 WEEKS
     Route: 042
     Dates: start: 20150630
  8. CLINDAMYCIN HCL [Suspect]
     Active Substance: CLINDAMYCIN HYDROCHLORIDE
     Indication: HELICOBACTER INFECTION
     Dosage: 500 MG, BID
     Route: 048
     Dates: start: 20160609, end: 20160611
  9. AMOXICILLIN. [Suspect]
     Active Substance: AMOXICILLIN
     Indication: HELICOBACTER INFECTION
     Dosage: 500 MG, BID
     Route: 048
     Dates: start: 20160609, end: 20160611
  10. FOLIC ACID. [Concomitant]
     Active Substance: FOLIC ACID
     Indication: SUPPLEMENTATION THERAPY
     Dosage: UNK
     Route: 048
     Dates: start: 2015
  11. TRAMADOL. [Concomitant]
     Active Substance: TRAMADOL
     Indication: RHEUMATOID ARTHRITIS
     Dosage: UNK
     Route: 048
     Dates: start: 2014
  12. ASPIRIN. [Concomitant]
     Active Substance: ASPIRIN
     Indication: PROPHYLAXIS
     Dosage: UNK
     Route: 048
     Dates: start: 20150601

REACTIONS (3)
  - Cholecystitis [Recovered/Resolved]
  - Clostridium difficile infection [Recovered/Resolved]
  - Helicobacter infection [Recovered/Resolved]

NARRATIVE: CASE EVENT DATE: 20160606
